FAERS Safety Report 4392230-2 (Version None)
Quarter: 2004Q3

REPORT INFORMATION
  Report Type: 
  Country: None (occurrence: None)
  Receive Date: 20040702
  Receipt Date: 20040625
  Transmission Date: 20050211
  Serious: Yes (Hospitalization)
  Sender: FDA-Public Use
  Company Number: 2004-02841

PATIENT
  Age: 3 Month
  Sex: Female

DRUGS (1)
  1. PREDNISOLONE [Suspect]
     Indication: HAEMANGIOMA
     Dosage: 3.5 MG/KG/DAY, ORAL
     Route: 048

REACTIONS (1)
  - PNEUMOCYSTIS CARINII PNEUMONIA [None]
